FAERS Safety Report 5541453-5 (Version None)
Quarter: 2007Q4

REPORT INFORMATION
  Report Type: 
  Country: None (occurrence: None)
  Receive Date: 20071210
  Receipt Date: 20071129
  Transmission Date: 20080405
  Serious: Yes (Hospitalization)
  Sender: FDA-Public Use
  Company Number: FR-JNJFOC-20071200621

PATIENT
  Age: 84 Year
  Sex: Female
  Weight: 78 kg

DRUGS (3)
  1. INFLIXIMAB [Suspect]
     Route: 042
  2. INFLIXIMAB [Suspect]
     Route: 042
  3. INFLIXIMAB [Suspect]
     Indication: CROHN'S DISEASE
     Route: 042

REACTIONS (6)
  - CYTOLYTIC HEPATITIS [None]
  - ILEUS [None]
  - INFLAMMATION [None]
  - ISCHAEMIC STROKE [None]
  - PLEURISY [None]
  - RENAL FAILURE [None]
